FAERS Safety Report 8049279-8 (Version None)
Quarter: 2012Q1

REPORT INFORMATION
  Report Type: 
  Country: None (occurrence: None)
  Receive Date: 20120117
  Receipt Date: 20120112
  Transmission Date: 20120608
  Serious: Yes (Other)
  Sender: FDA-Public Use
  Company Number: US-ROCHE-803108

PATIENT
  Sex: Female
  Weight: 66.738 kg

DRUGS (2)
  1. ACCUTANE [Suspect]
     Dates: start: 20050101, end: 20070101
  2. ACCUTANE [Suspect]
     Indication: ACNE
     Route: 065
     Dates: start: 19900101, end: 20040501

REACTIONS (3)
  - INTESTINAL OBSTRUCTION [None]
  - CROHN'S DISEASE [None]
  - DEPRESSION [None]
